FAERS Safety Report 25614076 (Version 1)
Quarter: 2025Q3

REPORT INFORMATION
  Report Type: Spontaneous
  Country: US (occurrence: US)
  Receive Date: 20250728
  Receipt Date: 20250728
  Transmission Date: 20251020
  Serious: No
  Sender: JOHNSON AND JOHNSON
  Company Number: US-JNJFOC-20250731987

PATIENT

DRUGS (1)
  1. SPRAVATO [Suspect]
     Active Substance: ESKETAMINE
     Indication: Depression
     Dosage: PATIENT^S MOST RECENT ADMINISTRATION WAS ON 18-JUL-2025
     Route: 045

REACTIONS (2)
  - Product dose omission issue [Unknown]
  - Condition aggravated [Unknown]
